FAERS Safety Report 6534551-0 (Version None)
Quarter: 2009Q4

REPORT INFORMATION
  Report Type: 
  Country: None (occurrence: None)
  Receive Date: 20091228
  Receipt Date: 20081103
  Transmission Date: 20100525
  Serious: Yes (Other)
  Sender: FDA-Public Use
  Company Number: US-002077

PATIENT
  Sex: Female

DRUGS (3)
  1. MULTIHANCE [Suspect]
     Indication: CEREBROVASCULAR ACCIDENT
     Dosage: 15ML QD INTRAVENOUS (NOT OTHERWISE SPECIFIED)
     Dates: start: 20081101, end: 20081101
  2. MULTIHANCE [Suspect]
     Indication: NUCLEAR MAGNETIC RESONANCE IMAGING BRAIN
     Dosage: 15ML QD INTRAVENOUS (NOT OTHERWISE SPECIFIED)
     Dates: start: 20081101, end: 20081101
  3. MULTIHANCE [Suspect]
     Indication: SYNCOPE
     Dosage: 15ML QD INTRAVENOUS (NOT OTHERWISE SPECIFIED)
     Dates: start: 20081101, end: 20081101

REACTIONS (3)
  - CHEST PAIN [None]
  - DEPRESSED LEVEL OF CONSCIOUSNESS [None]
  - HEADACHE [None]
